FAERS Safety Report 5514217-6 (Version None)
Quarter: 2007Q4

REPORT INFORMATION
  Report Type: 
  Country: None (occurrence: None)
  Receive Date: 20071113
  Receipt Date: 20071108
  Transmission Date: 20080405
  Serious: Yes (Other)
  Sender: FDA-Public Use
  Company Number: CA-ASTRAZENECA-2007UW26024

PATIENT
  Age: 79 Year
  Sex: Female

DRUGS (13)
  1. XYLOCAINE [Suspect]
     Route: 047
  2. BACTIGRAS [Suspect]
     Route: 047
  3. CYCLOPENTOLATE HYDROCHLORIDE [Suspect]
     Route: 047
  4. DORC VISION BLUE [Suspect]
     Route: 047
  5. FLURBIPROFEN [Suspect]
     Route: 047
  6. KETOROLAC [Suspect]
     Route: 047
  7. PHENYLEPHRINE HYDROCHLORIDE [Suspect]
     Dosage: 2.5%
     Route: 047
  8. PILOCARPINE [Suspect]
     Route: 047
  9. PREDNISOLONE [Suspect]
     Route: 047
  10. PROVIODINE [Suspect]
     Route: 047
  11. TETRACAINE [Suspect]
     Route: 047
  12. TROPICAMIDE [Suspect]
     Route: 047
  13. ZYMAR [Suspect]
     Route: 047

REACTIONS (2)
  - EYE DISORDER [None]
  - INFLAMMATION [None]
